FAERS Safety Report 12642276 (Version 5)
Quarter: 2016Q4

REPORT INFORMATION
  Report Type: Spontaneous
  Country: US (occurrence: US)
  Receive Date: 20160810
  Receipt Date: 20161226
  Transmission Date: 20170207
  Serious: Yes (Hospitalization, Disabling)
  Sender: FDA-Public Use
  Company Number: US-JNJFOC-20160804601

PATIENT
  Age: 68 Year
  Sex: Female
  Weight: 70.31 kg

DRUGS (14)
  1. MULTIVITAMIN [Concomitant]
     Active Substance: VITAMINS
     Route: 065
  2. ZOLPIDEM [Concomitant]
     Active Substance: ZOLPIDEM\ZOLPIDEM TARTRATE
     Indication: INSOMNIA
     Dosage: AT HOUR OF SLEEP; 5 TO 10 MG
     Route: 065
     Dates: start: 20131202
  3. CLONAZEPAM. [Concomitant]
     Active Substance: CLONAZEPAM
     Indication: DEPRESSION
     Dosage: 1 DAY
     Route: 065
     Dates: start: 20160107
  4. CLONAZEPAM. [Concomitant]
     Active Substance: CLONAZEPAM
     Indication: BIPOLAR DISORDER
     Dosage: 1 DAY
     Route: 065
     Dates: start: 20160107
  5. VITAMIN B [Concomitant]
     Active Substance: VITAMIN B
     Route: 065
  6. LEVAQUIN [Suspect]
     Active Substance: LEVOFLOXACIN
     Indication: SINUSITIS
     Dosage: 500 MG TOOK FOUR PILLS
     Route: 048
     Dates: start: 20160509, end: 20160512
  7. AMBIEN [Concomitant]
     Active Substance: ZOLPIDEM TARTRATE
     Indication: INSOMNIA
     Route: 065
  8. KLONOPIN [Concomitant]
     Active Substance: CLONAZEPAM
     Route: 065
  9. VITAMIN D [Concomitant]
     Active Substance: CHOLECALCIFEROL
     Route: 065
  10. VITAMIN C [Concomitant]
     Active Substance: ASCORBIC ACID
     Route: 065
  11. CLONAZEPAM. [Concomitant]
     Active Substance: CLONAZEPAM
     Indication: INSOMNIA
     Dosage: 1 DAY
     Route: 065
     Dates: start: 20160107
  12. LEVAQUIN [Suspect]
     Active Substance: LEVOFLOXACIN
     Indication: DYSURIA
     Dosage: 500 MG TOOK FOUR PILLS
     Route: 048
     Dates: start: 20160509, end: 20160512
  13. LEVAQUIN [Suspect]
     Active Substance: LEVOFLOXACIN
     Indication: PAIN IN JAW
     Dosage: 500 MG TOOK FOUR PILLS
     Route: 048
     Dates: start: 20160509, end: 20160512
  14. LEVAQUIN [Suspect]
     Active Substance: LEVOFLOXACIN
     Indication: URINARY TRACT INFECTION
     Dosage: 500 MG TOOK FOUR PILLS
     Route: 048
     Dates: start: 20160509, end: 20160512

REACTIONS (8)
  - Dyspnoea [Not Recovered/Not Resolved]
  - Plantar fasciitis [Recovering/Resolving]
  - Tendonitis [Not Recovered/Not Resolved]
  - Pain [Not Recovered/Not Resolved]
  - Pain in jaw [Not Recovered/Not Resolved]
  - Hypoaesthesia [Recovering/Resolving]
  - Gait disturbance [Not Recovered/Not Resolved]
  - Incorrect dose administered [Unknown]

NARRATIVE: CASE EVENT DATE: 201605
